FAERS Safety Report 7958742-7 (Version None)
Quarter: 2011Q4

REPORT INFORMATION
  Report Type: 
  Country: None (occurrence: None)
  Receive Date: 20111206
  Receipt Date: 20111124
  Transmission Date: 20120403
  Serious: Yes (Hospitalization, Other)
  Sender: FDA-Public Use
  Company Number: GB-JNJFOC-20110912276

PATIENT
  Age: 38 Year
  Sex: Female

DRUGS (5)
  1. REMICADE [Suspect]
     Route: 042
     Dates: start: 20110721
  2. REMICADE [Suspect]
     Dosage: 3 INFUSIONS GIVEN (0, 2 AND 6 WEEKS)
     Route: 042
     Dates: start: 20110523
  3. REMICADE [Suspect]
     Indication: RHEUMATOID ARTHRITIS
     Dosage: PREVIOUSLY REPORTED AS 3.5 MG/KG
     Route: 042
  4. METHYLPREDNISOLONE [Concomitant]
     Route: 042
     Dates: start: 20110501
  5. METHOTREXATE [Concomitant]
     Route: 058
     Dates: start: 20100901

REACTIONS (4)
  - BLOOD POTASSIUM DECREASED [None]
  - NEUROENDOCRINE CARCINOMA [None]
  - NEUTROPENIA [None]
  - ORAL HERPES [None]
